FAERS Safety Report 6126727-1 (Version None)
Quarter: 2009Q1

REPORT INFORMATION
  Report Type: 
  Country: None (occurrence: None)
  Receive Date: 20090320
  Receipt Date: 20080505
  Transmission Date: 20090719
  Serious: No
  Sender: FDA-Public Use
  Company Number: US-ABBOTT-08P-163-0450765-00

PATIENT
  Sex: Female
  Weight: 57.658 kg

DRUGS (1)
  1. ERYTHROMYCIN [Suspect]
     Indication: DRUG USE FOR UNKNOWN INDICATION
     Route: 048
     Dates: start: 20080411, end: 20080418

REACTIONS (4)
  - ASTHENIA [None]
  - CHEST DISCOMFORT [None]
  - PRURITUS [None]
  - URTICARIA [None]
